FAERS Safety Report 20697604 (Version 5)
Quarter: 2022Q3

REPORT INFORMATION
  Report Type: Other
  Country: JP (occurrence: JP)
  Receive Date: 20220411
  Receipt Date: 20220816
  Transmission Date: 20221027
  Serious: Yes (Other)
  Sender: FDA-Public Use
  Company Number: JP-CHUGAI-2022012045AA

PATIENT
  Age: 81 Year
  Sex: Male
  Weight: 60 kg

DRUGS (7)
  1. ATEZOLIZUMAB [Suspect]
     Active Substance: ATEZOLIZUMAB
     Indication: Lung adenocarcinoma
     Dosage: 1200 MILLIGRAM, ONCE/3WEEKS
     Route: 041
     Dates: start: 20210730, end: 20210910
  2. CARBOPLATIN [Concomitant]
     Active Substance: CARBOPLATIN
     Indication: Lung adenocarcinoma
     Dosage: 481 MILLIGRAM, SINGLE
     Route: 041
     Dates: start: 20210730, end: 20210730
  3. CARBOPLATIN [Concomitant]
     Active Substance: CARBOPLATIN
     Dosage: 385 MILLIGRAM, SINGLE
     Route: 041
     Dates: start: 20210820, end: 20210820
  4. CARBOPLATIN [Concomitant]
     Active Substance: CARBOPLATIN
     Dosage: 241 MILLIGRAM, SINGLE
     Route: 041
     Dates: start: 20210910, end: 20210910
  5. PEMETREXED DISODIUM [Concomitant]
     Active Substance: PEMETREXED DISODIUM
     Indication: Lung adenocarcinoma
     Dosage: 814 MILLIGRAM, SINGLE
     Route: 041
     Dates: start: 20210730, end: 20210730
  6. PEMETREXED DISODIUM [Concomitant]
     Active Substance: PEMETREXED DISODIUM
     Dosage: 651 MILLIGRAM, SINGLE
     Route: 041
     Dates: start: 20210820, end: 20210820
  7. PEMETREXED DISODIUM [Concomitant]
     Active Substance: PEMETREXED DISODIUM
     Dosage: 488 MILLIGRAM, SINGLE
     Route: 041
     Dates: start: 20210910, end: 20210910

REACTIONS (7)
  - Neutrophil count decreased [Recovered/Resolved]
  - Platelet count decreased [Not Recovered/Not Resolved]
  - Anaemia [Not Recovered/Not Resolved]
  - Decreased appetite [Recovered/Resolved]
  - Urinary tract infection [Recovered/Resolved]
  - Back pain [Not Recovered/Not Resolved]
  - Aspartate aminotransferase increased [Not Recovered/Not Resolved]

NARRATIVE: CASE EVENT DATE: 20210813
